FAERS Safety Report 24228128 (Version 1)
Quarter: 2024Q3

REPORT INFORMATION
  Report Type: Spontaneous
  Country: IR (occurrence: IR)
  Receive Date: 20240820
  Receipt Date: 20240820
  Transmission Date: 20241017
  Serious: Yes (Other)
  Sender: RANBAXY
  Company Number: IR-SUN PHARMACEUTICAL INDUSTRIES LTD-2024RR-462772

PATIENT
  Age: 51 Year
  Sex: Female

DRUGS (2)
  1. PREDNISOLONE [Suspect]
     Active Substance: PREDNISOLONE
     Indication: Urticarial vasculitis
     Dosage: UNK
     Route: 065
  2. METHOTREXATE [Suspect]
     Active Substance: METHOTREXATE
     Indication: Urticarial vasculitis
     Dosage: UNK
     Route: 065

REACTIONS (1)
  - Duodenal ulcer [Unknown]
